FAERS Safety Report 24947811 (Version 1)
Quarter: 2025Q1

REPORT INFORMATION
  Report Type: Spontaneous
  Country: US (occurrence: US)
  Receive Date: 20250210
  Receipt Date: 20250210
  Transmission Date: 20250409
  Serious: Yes (Hospitalization, Other)
  Sender: JOHNSON AND JOHNSON
  Company Number: US-JNJFOC-20250205904

PATIENT
  Age: 79 Year
  Sex: Female
  Weight: 56.25 kg

DRUGS (15)
  1. OPSUMIT [Suspect]
     Active Substance: MACITENTAN
     Indication: Product used for unknown indication
     Route: 048
  2. TYVASO DPI [Suspect]
     Active Substance: TREPROSTINIL
     Indication: Pulmonary arterial hypertension
     Route: 065
     Dates: start: 20231102
  3. SOTATERCEPT [Suspect]
     Active Substance: SOTATERCEPT
     Indication: Product used for unknown indication
  4. SILDENAFIL CITRATE [Suspect]
     Active Substance: SILDENAFIL CITRATE
     Indication: Product used for unknown indication
     Route: 065
  5. LEVOTHYROXINE SODIUM [Concomitant]
     Active Substance: LEVOTHYROXINE SODIUM
  6. TYLENOL EXTRA STRENGTH [Concomitant]
     Active Substance: ACETAMINOPHEN
  7. METRONIDAZOLE [Concomitant]
     Active Substance: METRONIDAZOLE
  8. AFRIN [BENZALKONIUM CHLORIDE;GLYCINE;OXYMETAZOLINE HYDROCHLORIDE;PHENY [Concomitant]
  9. METOPROLOL SUCCINATE [Concomitant]
     Active Substance: METOPROLOL SUCCINATE
  10. LISINOPRIL [Concomitant]
     Active Substance: LISINOPRIL
  11. OXYGEN [Concomitant]
     Active Substance: OXYGEN
  12. BUMETANIDE [Concomitant]
     Active Substance: BUMETANIDE
  13. FEBUXOSTAT [Concomitant]
     Active Substance: FEBUXOSTAT
  14. ATORVASTATIN CALCIUM [Concomitant]
     Active Substance: ATORVASTATIN CALCIUM
  15. AMLODIPINE BESYLATE [Concomitant]
     Active Substance: AMLODIPINE BESYLATE

REACTIONS (7)
  - Pulmonary oedema [Unknown]
  - Pericardial effusion [Unknown]
  - Pleural effusion [Unknown]
  - Epistaxis [Unknown]
  - Cough [Unknown]
  - Erythema [Unknown]
  - Nasal congestion [Unknown]

NARRATIVE: CASE EVENT DATE: 20241224
